FAERS Safety Report 24563151 (Version 1)
Quarter: 2024Q4

REPORT INFORMATION
  Report Type: Spontaneous
  Country: GB (occurrence: GB)
  Receive Date: 20241030
  Receipt Date: 20241030
  Transmission Date: 20250115
  Serious: Yes (Other)
  Sender: TEVA
  Company Number: GB-MHRA-31753284

PATIENT
  Age: 78 Year
  Sex: Male

DRUGS (3)
  1. EZETIMIBE [Suspect]
     Active Substance: EZETIMIBE
     Indication: Blood cholesterol increased
     Route: 065
  2. Eye drops for high pressure in my eyes [Concomitant]
     Indication: Ocular discomfort
     Dosage: EYE DROPS FOR HIGH PRESSURE IN MY EYES
     Route: 065
  3. VIAGRA [Concomitant]
     Active Substance: SILDENAFIL CITRATE
     Indication: Erectile dysfunction
     Route: 065
     Dates: start: 1999

REACTIONS (1)
  - Constipation [Recovered/Resolved]
